FAERS Safety Report 9831533 (Version 1)
Quarter: 2014Q1

REPORT INFORMATION
  Report Type: Report from Study
  Country: GR (occurrence: GR)
  Receive Date: 20140121
  Receipt Date: 20140121
  Transmission Date: 20141002
  Serious: Yes (Death, Other)
  Sender: FDA-Public Use
  Company Number: GR-ROCHE-1334830

PATIENT
  Sex: Female

DRUGS (4)
  1. BEVACIZUMAB [Suspect]
     Indication: LUNG ADENOCARCINOMA
     Dosage: (1ST LINE THERAPY)
     Route: 042
     Dates: start: 20120712
  2. ERLOTINIB [Suspect]
     Indication: LUNG ADENOCARCINOMA
     Dosage: 2ND LINE THERAPY
     Route: 048
     Dates: start: 20130124, end: 20130321
  3. CARBOPLATIN [Concomitant]
     Indication: NON-SMALL CELL LUNG CANCER
     Route: 042
     Dates: start: 20120712, end: 20121113
  4. PEMETREXED [Concomitant]
     Indication: NON-SMALL CELL LUNG CANCER
     Route: 042
     Dates: start: 20120712, end: 20121113

REACTIONS (8)
  - Death [Fatal]
  - Disease progression [Unknown]
  - Asthenia [Unknown]
  - Catabolic state [Unknown]
  - Rash [Unknown]
  - Haemoptysis [Unknown]
  - Lacrimation increased [Unknown]
  - Alopecia [Unknown]
